FAERS Safety Report 10143491 (Version 1)
Quarter: 2014Q2

REPORT INFORMATION
  Report Type: Spontaneous
  Country: US (occurrence: None)
  Receive Date: 20140429
  Receipt Date: 20140429
  Transmission Date: 20141212
  Serious: Yes (Hospitalization)
  Sender: FDA-Public Use
  Company Number: None

PATIENT
  Age: 81 Year
  Sex: Female
  Weight: 70.08 kg

DRUGS (23)
  1. CARBOPLATIN [Suspect]
  2. PACLITAXEL [Suspect]
     Indication: THERAPY CHANGE
  3. ALPRAZOLAM [Concomitant]
  4. BUDESONIDE-FORMOTEROL FUMARATE [Concomitant]
  5. CALCIUM CARBONATE-VITAMIN D [Concomitant]
  6. DEXAMETHSONE [Concomitant]
  7. DOCUSATE SODIUM [Concomitant]
  8. GABAPENTIN [Concomitant]
  9. IRON [Concomitant]
  10. LEVOTHYROXINE SODIUM [Concomitant]
  11. NYSTATIN-TRIAMCINOLONE [Concomitant]
  12. OMEGA-3(FISH OIL OTC) FATTY ACIDS [Concomitant]
  13. ONDANSETRON HCL [Concomitant]
  14. PAROXETINE HCL [Concomitant]
  15. POLYETHYLENE GLYCOL [Concomitant]
  16. PROCHLORPERAZINE MALEATE [Suspect]
  17. SODIUM CHLORIDE [Concomitant]
  18. VENTOLIN HFA [Concomitant]
  19. VERAPAMIL HCL ER [Concomitant]
  20. VITAMINS B1 B6 B12 PO CAPS [Concomitant]
  21. WARFARIN SODIUM 5 MG PO TABS [Concomitant]
  22. DIGOXIN(LANOXIN) [Concomitant]
  23. TYLENOL [Concomitant]

REACTIONS (12)
  - Asthenia [None]
  - Fatigue [None]
  - Neuropathy peripheral [None]
  - Dizziness [None]
  - Dizziness [None]
  - Headache [None]
  - Flatulence [None]
  - Vomiting [None]
  - Burning sensation [None]
  - Abdominal pain [None]
  - Dyspnoea [None]
  - Dysstasia [None]
